FAERS Safety Report 8221651-2 (Version None)
Quarter: 2012Q1

REPORT INFORMATION
  Report Type: 
  Country: None (occurrence: None)
  Receive Date: 20120320
  Receipt Date: 20120313
  Transmission Date: 20120608
  Serious: Yes (Other)
  Sender: FDA-Public Use
  Company Number: US-JNJFOC-20120306346

PATIENT
  Sex: Female

DRUGS (2)
  1. ANTIHORMONE TREATMENT [Concomitant]
     Indication: BREAST CANCER METASTATIC
     Route: 065
  2. DOXORUBICIN HCL [Suspect]
     Indication: BREAST CANCER METASTATIC
     Route: 042

REACTIONS (8)
  - BLOOD BILIRUBIN INCREASED [None]
  - NEUTROPENIA [None]
  - ARTHRALGIA [None]
  - LEUKOPENIA [None]
  - DYSPNOEA [None]
  - INFECTION [None]
  - ANAEMIA [None]
  - DEHYDRATION [None]
